FAERS Safety Report 7720512-2 (Version None)
Quarter: 2011Q3

REPORT INFORMATION
  Report Type: 
  Country: None (occurrence: None)
  Receive Date: 20110831
  Receipt Date: 20110823
  Transmission Date: 20111222
  Serious: Yes (Death)
  Sender: FDA-Public Use
  Company Number: JP-EISAI INC-E7389-01315-SPO-JP

PATIENT
  Age: 47 Year
  Sex: Female

DRUGS (1)
  1. HALAVEN [Suspect]
     Indication: METASTASES TO LIVER
     Route: 025
     Dates: start: 20110630, end: 20110701

REACTIONS (2)
  - BONE MARROW FAILURE [None]
  - INCORRECT ROUTE OF DRUG ADMINISTRATION [None]
